FAERS Safety Report 6656535-4 (Version None)
Quarter: 2010Q1

REPORT INFORMATION
  Report Type: 
  Country: None (occurrence: None)
  Receive Date: 20100329
  Receipt Date: 20100325
  Transmission Date: 20100710
  Serious: Yes (Other)
  Sender: FDA-Public Use
  Company Number: DE-WYE-G05736510

PATIENT
  Age: 48 Year
  Sex: Male

DRUGS (10)
  1. VENLAFAXINE HCL [Suspect]
     Indication: MAJOR DEPRESSION
     Route: 048
     Dates: start: 20100120, end: 20100120
  2. VENLAFAXINE HCL [Interacting]
     Route: 048
     Dates: start: 20100121, end: 20100127
  3. VENLAFAXINE HCL [Interacting]
     Route: 048
     Dates: start: 20100128, end: 20100201
  4. VENLAFAXINE HCL [Interacting]
     Route: 048
     Dates: start: 20100202, end: 20100207
  5. VENLAFAXINE HCL [Interacting]
     Route: 048
     Dates: start: 20100208
  6. PANTOPRAZOLE SODIUM [Concomitant]
     Route: 048
     Dates: start: 20091222
  7. IBUPROFEN [Concomitant]
     Dosage: UNKNOWN DOSE, ON DEMAND
     Route: 048
  8. MIRTAZAPINE [Interacting]
     Indication: MAJOR DEPRESSION
     Route: 048
     Dates: start: 20100222, end: 20100225
  9. MIRTAZAPINE [Interacting]
     Route: 048
     Dates: start: 20100303, end: 20100304
  10. MIRTAZAPINE [Interacting]
     Route: 048
     Dates: start: 20100305

REACTIONS (3)
  - BLOOD CREATINE PHOSPHOKINASE INCREASED [None]
  - DRUG INTERACTION [None]
  - RHABDOMYOLYSIS [None]
